FAERS Safety Report 23029210 (Version 1)
Quarter: 2023Q4

REPORT INFORMATION
  Report Type: Spontaneous
  Country: CA (occurrence: CA)
  Receive Date: 20231004
  Receipt Date: 20231004
  Transmission Date: 20240109
  Serious: Yes (Hospitalization)
  Sender: FDA-Public Use
  Company Number: CA-SANDOZ-SDZ2023CA034181

PATIENT
  Age: 75 Year
  Sex: Male

DRUGS (3)
  1. AZACITIDINE [Suspect]
     Active Substance: AZACITIDINE
     Indication: Product used for unknown indication
     Dosage: UNK
     Route: 065
  2. VENCLEXTA [Suspect]
     Active Substance: VENETOCLAX
     Indication: Acute myeloid leukaemia
     Dosage: 400 MG, 1 EVERY 1 DAYS
     Route: 048
  3. VENCLEXTA [Suspect]
     Active Substance: VENETOCLAX
     Dosage: 400 MG, 1 EVERY 1 DAYS
     Route: 048

REACTIONS (6)
  - Neutropenia [Recovered/Resolved]
  - Pyrexia [Recovered/Resolved]
  - Pyrexia [Unknown]
  - Tumour lysis syndrome [Unknown]
  - Unevaluable event [Unknown]
  - White blood cell count decreased [Recovered/Resolved]
